FAERS Safety Report 8339683-2 (Version None)
Quarter: 2012Q2

REPORT INFORMATION
  Report Type: 
  Country: None (occurrence: None)
  Receive Date: 20120502
  Receipt Date: 20120417
  Transmission Date: 20120825
  Serious: Yes (Hospitalization)
  Sender: FDA-Public Use
  Company Number: VALP20120009

PATIENT
  Sex: Male
  Weight: 2.72 kg

DRUGS (2)
  1. PHENYTOIN [Suspect]
     Indication: MATERNAL DRUGS AFFECTING FOETUS
     Dosage: 200 MG, TRANSPLACENTAL
     Route: 064
  2. VALPROIC ACID [Suspect]
     Indication: MATERNAL DRUGS AFFECTING FOETUS
     Dosage: 600 MG, TRANSPLACENTAL
     Route: 064

REACTIONS (14)
  - HYPOTONIA NEONATAL [None]
  - MATERNAL DEATH AFFECTING FOETUS [None]
  - CAESAREAN SECTION [None]
  - AGITATION NEONATAL [None]
  - BRADYCARDIA NEONATAL [None]
  - CYANOSIS NEONATAL [None]
  - ASPARTATE AMINOTRANSFERASE INCREASED [None]
  - BLOOD LACTATE DEHYDROGENASE INCREASED [None]
  - HYPOGLYCAEMIA NEONATAL [None]
  - PREMATURE BABY [None]
  - BLOOD CREATINE PHOSPHOKINASE INCREASED [None]
  - NEONATAL RESPIRATORY DISTRESS SYNDROME [None]
  - BLOOD CREATINE PHOSPHOKINASE MB INCREASED [None]
  - DRUG WITHDRAWAL SYNDROME NEONATAL [None]
